FAERS Safety Report 6419767-6 (Version None)
Quarter: 2009Q4

REPORT INFORMATION
  Report Type: 
  Country: None (occurrence: None)
  Receive Date: 20091016
  Receipt Date: 20090625
  Transmission Date: 20100525
  Serious: Yes (Death)
  Sender: FDA-Public Use
  Company Number: KV200900140

PATIENT
  Age: 52 Year
  Sex: Female
  Weight: 113.4 kg

DRUGS (10)
  1. MORPHINE SULFATE [Suspect]
     Indication: PAIN
     Dosage: ORAL
     Route: 048
  2. MORPHINE SULFATE [Suspect]
     Indication: PAIN
     Dosage: ORAL
     Route: 048
  3. METHADONE (METHADONE) [Concomitant]
  4. GLIPIZIDE [Concomitant]
  5. ASPIRIN [Concomitant]
  6. XANAX [Concomitant]
  7. NORVASC /00972401/ (AMLODIPINE) [Concomitant]
  8. LASIX [Concomitant]
  9. POTASSIUM CHLORIDE [Concomitant]
  10. OXYCODONE HCL [Concomitant]

REACTIONS (4)
  - DRUG ABUSE [None]
  - NARCOTIC INTOXICATION [None]
  - PRODUCT QUALITY ISSUE [None]
  - VOMITING [None]
